FAERS Safety Report 19501156 (Version 1)
Quarter: 2021Q3

REPORT INFORMATION
  Report Type: Report from Study
  Country: ES (occurrence: ES)
  Receive Date: 20210707
  Receipt Date: 20210707
  Transmission Date: 20211014
  Serious: Yes (Hospitalization)
  Sender: FDA-Public Use
  Company Number: ES-ROCHE-1670594

PATIENT
  Age: 59 Year
  Sex: Female
  Weight: 59.5 kg

DRUGS (10)
  1. MAGNESIUM [Concomitant]
     Active Substance: MAGNESIUM
     Dates: start: 20151128, end: 20151221
  2. SIMETHICONE (DIMETHICONE) [Concomitant]
     Active Substance: DIMETHICONE
     Dates: start: 20151127, end: 20151201
  3. LORAZEPAM. [Concomitant]
     Active Substance: LORAZEPAM
     Dates: start: 20140630
  4. ATEZOLIZUMAB. [Suspect]
     Active Substance: ATEZOLIZUMAB
     Indication: NEOPLASM
     Dosage: DATE OF LAST DOSE PRIOR TO AE: 23/NOV/2015
     Route: 041
     Dates: start: 20151123
  5. SIMVASTATINE [Concomitant]
     Active Substance: SIMVASTATIN
     Dates: start: 20151128, end: 20151201
  6. ORFIDAL [Concomitant]
     Active Substance: LORAZEPAM
     Dates: start: 20140630
  7. PREGABALIN. [Concomitant]
     Active Substance: PREGABALIN
     Dates: start: 20151128
  8. PANTOPRAZOLE [Concomitant]
     Active Substance: PANTOPRAZOLE
     Dates: start: 20151126
  9. NISTATINA [Concomitant]
     Active Substance: NYSTATIN
     Dates: start: 20151127, end: 20151128
  10. RO6895882 (CEA?IL2V) [Suspect]
     Active Substance: CERGUTUZUMAB AMUNALEUKIN
     Indication: NEOPLASM
     Dosage: DATE OF LAST DOSE PRIOR TO AE: 23/NOV/2015
     Route: 042
     Dates: start: 20151123

REACTIONS (5)
  - Blood bilirubin increased [Recovered/Resolved]
  - Hepatotoxicity [Recovered/Resolved]
  - Aspartate aminotransferase increased [Recovered/Resolved]
  - Drug-induced liver injury [Recovered/Resolved]
  - Alanine aminotransferase increased [Recovered/Resolved]

NARRATIVE: CASE EVENT DATE: 20151124
